FAERS Safety Report 7609559-4 (Version None)
Quarter: 2011Q3

REPORT INFORMATION
  Report Type: 
  Country: None (occurrence: None)
  Receive Date: 20110714
  Receipt Date: 20110708
  Transmission Date: 20111222
  Serious: Yes (Other)
  Sender: FDA-Public Use
  Company Number: AT-PFIZER INC-2011126880

PATIENT
  Age: 66 Year
  Sex: Male
  Weight: 130 kg

DRUGS (12)
  1. SUFENTA PRESERVATIVE FREE [Concomitant]
  2. SOLU-CORTEF [Concomitant]
  3. TYGACIL [Suspect]
     Indication: PANCREATITIS
     Dosage: 150 MG, DAILY
     Dates: start: 20110315, end: 20110405
  4. NOREPINEPHRINE BITARTRATE [Concomitant]
  5. SANDOSTATIN [Concomitant]
  6. TAZONAM [Concomitant]
  7. ZYVOX [Concomitant]
     Dosage: 600 MG, 2X/DAY
  8. DORMICUM TABLET ^ROCHE^ [Concomitant]
  9. CANCIDAS [Suspect]
     Indication: PANCREATITIS
     Dosage: 70 MG, DAILY
     Dates: start: 20110330, end: 20110412
  10. VASOPRESSIN INJECTION [Concomitant]
  11. CLONIDINE [Concomitant]
  12. KETANEST [Concomitant]

REACTIONS (1)
  - HEPATIC FAILURE [None]
